FAERS Safety Report 16636415 (Version 2)
Quarter: 2019Q3

REPORT INFORMATION
  Report Type: Spontaneous
  Country: US (occurrence: US)
  Receive Date: 20190726
  Receipt Date: 20190918
  Transmission Date: 20191004
  Serious: No
  Sender: FDA-Public Use
  Company Number: US-PFIZER INC-2019027231

PATIENT
  Age: 78 Year
  Sex: Male
  Weight: 74.83 kg

DRUGS (9)
  1. GENOTROPIN [Suspect]
     Active Substance: SOMATROPIN
     Indication: PITUITARY TUMOUR BENIGN
     Dosage: UNK
  2. HUMATROPE [Suspect]
     Active Substance: SOMATROPIN
     Indication: PITUITARY TUMOUR BENIGN
     Dosage: 0.125 MG, DAILY (ONCE EVERYDAY )
  3. GENOTROPIN [Suspect]
     Active Substance: SOMATROPIN
     Indication: PITUITARY TUMOUR REMOVAL
     Dosage: 0.2 MG, 1X/DAY
     Dates: start: 20190123
  4. HUMATROPE [Suspect]
     Active Substance: SOMATROPIN
     Indication: GROWTH HORMONE DEFICIENCY
  5. HUMATROPE [Suspect]
     Active Substance: SOMATROPIN
     Indication: HYPOTHALAMO-PITUITARY DISORDER
  6. GENOTROPIN [Suspect]
     Active Substance: SOMATROPIN
     Indication: GROWTH HORMONE DEFICIENCY
  7. JANUMET [Concomitant]
     Active Substance: METFORMIN HYDROCHLORIDE\SITAGLIPTIN PHOSPHATE
     Indication: DIABETES MELLITUS
     Dosage: 1 DF, 1X/DAY [METFORMIN HYDROCHLORIDE: 50 MG, SITAGLIPTIN PHOSPHATE: 1000 MG]
  8. HUMATROPE [Suspect]
     Active Substance: SOMATROPIN
     Indication: PITUITARY TUMOUR REMOVAL
     Dosage: 0.125 MG, 1X/DAY
     Dates: start: 200010, end: 20190111
  9. GENOTROPIN [Suspect]
     Active Substance: SOMATROPIN
     Indication: HYPOTHALAMO-PITUITARY DISORDER

REACTIONS (2)
  - Wrong technique in device usage process [Unknown]
  - Therapeutic product effect incomplete [Unknown]
